FAERS Safety Report 14140384 (Version 2)
Quarter: 2018Q1

REPORT INFORMATION
  Report Type: Spontaneous
  Country: US (occurrence: US)
  Receive Date: 20171030
  Receipt Date: 20180228
  Transmission Date: 20180508
  Serious: Yes (Hospitalization)
  Sender: FDA-Public Use
  Company Number: US-BAUSCH-BL-2017-030135

PATIENT
  Sex: Male
  Weight: 135 kg

DRUGS (2)
  1. XENAZINE [Suspect]
     Active Substance: TETRABENAZINE
     Indication: HUNTINGTON^S DISEASE
     Route: 048
     Dates: start: 2014
  2. XENAZINE [Suspect]
     Active Substance: TETRABENAZINE
     Indication: TARDIVE DYSKINESIA
     Dosage: FOUR TABLETS AT 8 AM, FOUR TABLETS AT 2 PM, AND TWO TABLETS AT BEDTIME
     Route: 048
     Dates: start: 20170419

REACTIONS (4)
  - Hospitalisation [Unknown]
  - Adverse event [Unknown]
  - Prescribed overdose [Unknown]
  - Schizophrenia [Recovered/Resolved]
